FAERS Safety Report 13699914 (Version 1)
Quarter: 2017Q2

REPORT INFORMATION
  Report Type: Report from Study
  Country: MX (occurrence: MX)
  Receive Date: 20170629
  Receipt Date: 20170629
  Transmission Date: 20170830
  Serious: Yes (Hospitalization, Other)
  Sender: FDA-Public Use
  Company Number: MX-CONCORDIA PHARMACEUTICALS INC.-GSH201706-003823

PATIENT
  Age: 58 Year
  Sex: Female

DRUGS (3)
  1. FOLIC ACID. [Concomitant]
     Active Substance: FOLIC ACID
     Dates: start: 2012
  2. PLAQUENIL [Suspect]
     Active Substance: HYDROXYCHLOROQUINE SULFATE
     Indication: RHEUMATOID ARTHRITIS
     Route: 048
     Dates: start: 2012
  3. VALMETROL-3 [Concomitant]
     Dates: start: 2012

REACTIONS (2)
  - Breast cancer [Recovered/Resolved]
  - Mastectomy [Unknown]

NARRATIVE: CASE EVENT DATE: 2014
